FAERS Safety Report 5249121-4 (Version None)
Quarter: 2007Q1

REPORT INFORMATION
  Report Type: 
  Country: None (occurrence: None)
  Receive Date: 20070222
  Receipt Date: 20070207
  Transmission Date: 20070707
  Serious: Yes (Death)
  Sender: FDA-Public Use
  Company Number: 010908

PATIENT
  Age: 5 Year

DRUGS (1)
  1. CLARAVIS [Suspect]
     Indication: NEUROBLASTOMA
     Dosage: ORAL
     Route: 048
     Dates: start: 20061107, end: 20061219

REACTIONS (1)
  - DEATH [None]
